FAERS Safety Report 23247447 (Version 1)
Quarter: 2023Q4

REPORT INFORMATION
  Report Type: Spontaneous
  Country: CN (occurrence: None)
  Receive Date: 20231130
  Receipt Date: 20231130
  Transmission Date: 20240110
  Serious: Yes (Other)
  Sender: FDA-Public Use
  Company Number: 2023A267587

PATIENT
  Age: 78 Year
  Sex: Male

DRUGS (5)
  1. OSIMERTINIB [Suspect]
     Active Substance: OSIMERTINIB
     Indication: Lung adenocarcinoma
     Route: 048
     Dates: start: 202107
  2. CATEQUENTINIB [Concomitant]
     Active Substance: CATEQUENTINIB
     Indication: Lung adenocarcinoma
  3. PEMBROLIZUMAB [Concomitant]
     Active Substance: PEMBROLIZUMAB
     Indication: Lung adenocarcinoma
     Dates: start: 202111
  4. PEMETREXED [Concomitant]
     Active Substance: PEMETREXED
     Indication: Lung adenocarcinoma
     Dates: start: 202111
  5. PLATINUM [Concomitant]
     Active Substance: PLATINUM
     Indication: Lung adenocarcinoma

REACTIONS (3)
  - Malignant neoplasm progression [Unknown]
  - Drug resistance [Unknown]
  - Acquired gene mutation [Unknown]
